FAERS Safety Report 8500819-1 (Version None)
Quarter: 2012Q3

REPORT INFORMATION
  Report Type: 
  Country: None (occurrence: None)
  Receive Date: 20120703
  Receipt Date: 20120703
  Transmission Date: 20120928
  Serious: Yes (Hospitalization, Other)
  Sender: FDA-Public Use
  Company Number: None

PATIENT
  Age: 57 Year
  Sex: Male
  Weight: 127.7 kg

DRUGS (1)
  1. PENICILLIN [Suspect]
     Indication: UPPER RESPIRATORY TRACT INFECTION
     Dosage: 500 MG QID PO
     Route: 048
     Dates: start: 20120302, end: 20120302

REACTIONS (3)
  - URTICARIA [None]
  - SWELLING [None]
  - ANGIOEDEMA [None]
